FAERS Safety Report 17467338 (Version 4)
Quarter: 2020Q3

REPORT INFORMATION
  Report Type: Spontaneous
  Country: US (occurrence: US)
  Receive Date: 20200227
  Receipt Date: 20200722
  Transmission Date: 20201102
  Serious: No
  Sender: FDA-Public Use
  Company Number: US-PFIZER INC-2019320712

PATIENT
  Age: 71 Year
  Sex: Female
  Weight: 57 kg

DRUGS (3)
  1. IBRANCE [Suspect]
     Active Substance: PALBOCICLIB
     Indication: BREAST CANCER STAGE IV
     Dosage: 125 MG, CYCLIC (125 MG BY MOUTH ONE TIME A DAY DAYS 1?21 OF A 28 DAY CYCLE/21 DAYS ON AND 7 DAYS OFF
     Route: 048
     Dates: start: 20190623
  2. LETROZOLE. [Concomitant]
     Active Substance: LETROZOLE
     Dosage: UNK
  3. IBRANCE [Suspect]
     Active Substance: PALBOCICLIB
     Indication: BREAST CANCER FEMALE

REACTIONS (3)
  - Madarosis [Unknown]
  - Cognitive disorder [Unknown]
  - Alopecia [Unknown]
